FAERS Safety Report 7632551 (Version 10)
Quarter: 2013Q3

REPORT INFORMATION
  Report Type: Spontaneous
  Country: US (occurrence: US)
  Receive Date: 20101018
  Receipt Date: 20130717
  Transmission Date: 20140515
  Serious: Yes (Death, Hospitalization, Congenital Anomaly, Other)
  Sender: FDA-Public Use
  Company Number: US-PFIZER INC-2010128148

PATIENT
  Sex: Female
  Weight: 2.74 kg

DRUGS (26)
  1. ZOLOFT [Suspect]
     Indication: DEPRESSION
     Dosage: UNK
     Route: 064
     Dates: start: 199901, end: 200312
  2. ZOLOFT [Suspect]
     Indication: ANXIETY
     Dosage: 50 MG, UNK
     Route: 064
     Dates: start: 20020215, end: 200301
  3. ZOLOFT [Suspect]
     Dosage: 100 MG, UNK
     Route: 064
     Dates: start: 20020315
  4. ZOLOFT [Suspect]
     Dosage: 150 MG, UNK
     Route: 064
     Dates: start: 20020716
  5. SERTRALINE HCL [Suspect]
     Dosage: UNK
     Route: 064
     Dates: start: 199901, end: 200312
  6. Z-PAK [Concomitant]
     Indication: SINOBRONCHITIS
     Dosage: UNK
     Route: 064
     Dates: start: 20030121
  7. ROBITUSSIN-DAC [Concomitant]
     Indication: SINOBRONCHITIS
     Dosage: UNK
     Route: 064
     Dates: start: 20030121
  8. ALLEGRA-D [Concomitant]
     Dosage: UNK
     Route: 064
     Dates: start: 20030724
  9. LOESTRIN FE [Concomitant]
     Dosage: UNK
     Route: 064
  10. DEPO-PROVERA [Concomitant]
     Dosage: UNK
     Route: 064
  11. WELLBUTRIN SR [Concomitant]
     Dosage: UNK
     Route: 064
  12. GUAIFENESIN [Concomitant]
     Dosage: UNK
     Route: 064
  13. HYDROCODONE/APAP [Concomitant]
     Dosage: UNK
     Route: 064
  14. AMBIEN [Concomitant]
     Dosage: UNK
     Route: 064
  15. TRAZODONE [Concomitant]
     Dosage: UNK
     Route: 064
  16. EFFEXOR-XR [Concomitant]
     Dosage: UNK
     Route: 064
  17. CELEBREX [Concomitant]
     Dosage: UNK
     Route: 064
  18. DIFLUCAN [Concomitant]
     Dosage: UNK
     Route: 064
  19. ZITHROMAX [Concomitant]
     Dosage: UNK
     Route: 064
  20. TUSSIONEX [Concomitant]
     Dosage: UNK
     Route: 064
  21. ZYRTEC [Concomitant]
     Dosage: UNK
     Route: 064
  22. FAMOTIDINE [Concomitant]
     Dosage: UNK
     Route: 064
  23. PREDNISONE [Concomitant]
     Dosage: UNK
     Route: 064
  24. CYCLOBENZAPRINE [Concomitant]
     Dosage: UNK
     Route: 064
  25. PRENATAL VITAMINS [Concomitant]
     Dosage: UNK
     Route: 064
  26. FOLIC ACID [Concomitant]
     Dosage: UNK
     Route: 064

REACTIONS (15)
  - Foetal exposure during pregnancy [Fatal]
  - Neonatal respiratory distress syndrome [Fatal]
  - Anomalous pulmonary venous connection [Fatal]
  - Limb reduction defect [Fatal]
  - Ventricular septal defect [Fatal]
  - Cardio-respiratory arrest [Fatal]
  - Congenital anomaly [Fatal]
  - Atrial septal defect [Not Recovered/Not Resolved]
  - Low set ears [Not Recovered/Not Resolved]
  - Genitalia external ambiguous [Not Recovered/Not Resolved]
  - Pulmonary hypoplasia [Unknown]
  - Respiratory failure [Unknown]
  - Hypoxia [Unknown]
  - Cardiomegaly [Unknown]
  - Pulmonary vein occlusion [Unknown]
